FAERS Safety Report 9254576 (Version 1)
Quarter: 2013Q1

REPORT INFORMATION
  Report Type: Spontaneous
  Country: US (occurrence: None)
  Receive Date: 20121210
  Receipt Date: 20121210
  Transmission Date: 20140127
  Serious: No
  Sender: FDA-Public Use
  Company Number: 1208USA006396

PATIENT
  Age: 73 Year
  Sex: Female

DRUGS (5)
  1. ZIOPTAN [Suspect]
     Indication: GLAUCOMA
     Route: 047
     Dates: start: 20120802, end: 20120816
  2. AZOPT [Concomitant]
  3. LUMIGAN (BIMATOPROST) [Concomitant]
  4. COZAAR (LOSARTAN POTASSIUM) (50 MILLIGRAM, TABLETS) (LOSARTAN POTASSIUM) [Suspect]
  5. AMILORIDE [Concomitant]

REACTIONS (1)
  - Nasopharyngitis [None]
